FAERS Safety Report 17257077 (Version 1)
Quarter: 2020Q1

REPORT INFORMATION
  Report Type: Spontaneous
  Country: TW (occurrence: TW)
  Receive Date: 20200110
  Receipt Date: 20200110
  Transmission Date: 20200409
  Serious: Yes (Other)
  Sender: FDA-Public Use
  Company Number: TW-B.I. PHARMACEUTICALS,INC./RIDGEFIELD-2020-BI-001251

PATIENT
  Age: 56 Year
  Sex: Female

DRUGS (5)
  1. GILOTRIF [Suspect]
     Active Substance: AFATINIB
     Indication: EGFR GENE MUTATION
     Route: 065
  2. GILOTRIF [Suspect]
     Active Substance: AFATINIB
     Indication: METASTASES TO CENTRAL NERVOUS SYSTEM
  3. GILOTRIF [Suspect]
     Active Substance: AFATINIB
     Indication: METASTASES TO ADRENALS
  4. GILOTRIF [Suspect]
     Active Substance: AFATINIB
     Indication: LUNG ADENOCARCINOMA STAGE IV
  5. GILOTRIF [Suspect]
     Active Substance: AFATINIB
     Indication: METASTASES TO BONE

REACTIONS (2)
  - Malignant neoplasm progression [Unknown]
  - Drug resistance [Unknown]
